FAERS Safety Report 11103586 (Version 1)
Quarter: 2015Q2

REPORT INFORMATION
  Report Type: Spontaneous
  Country: US (occurrence: None)
  Receive Date: 20150508
  Receipt Date: 20150508
  Transmission Date: 20150821
  Serious: No
  Sender: FDA-Public Use
  Company Number: None

PATIENT
  Age: 58 Year
  Sex: Female
  Weight: 99.79 kg

DRUGS (1)
  1. PEGASYS [Suspect]
     Active Substance: PEGINTERFERON ALFA-2A
     Indication: HEPATITIS C
     Dosage: ROUTE: SUBCUTANEOUS 057  DOSE FORM: INJECTABLE  FREQUENCY: WEEKLY
     Route: 058
     Dates: start: 20150404

REACTIONS (4)
  - Dry skin [None]
  - Pruritus [None]
  - Influenza like illness [None]
  - Platelet count decreased [None]

NARRATIVE: CASE EVENT DATE: 20150404
